FAERS Safety Report 9998211 (Version 1)
Quarter: 2014Q1

REPORT INFORMATION
  Report Type: Spontaneous
  Country: GB (occurrence: GB)
  Receive Date: 20140311
  Receipt Date: 20140311
  Transmission Date: 20141002
  Serious: Yes (Other)
  Sender: FDA-Public Use
  Company Number: GB-MYLANLABS-2014S1004521

PATIENT
  Age: 74 Year
  Sex: Male
  Weight: 87 kg

DRUGS (11)
  1. CLARITHROMYCIN [Suspect]
     Dates: start: 20140214
  2. ATORVASTATIN [Concomitant]
     Dates: start: 20140206
  3. CARBOCISTEINE [Concomitant]
     Dates: start: 20131017
  4. CO-CODAMOL [Concomitant]
     Dates: start: 20140129, end: 20140210
  5. KETOCONAZOLE [Concomitant]
     Dates: start: 20140206
  6. SERETIDE [Concomitant]
     Dates: start: 20140129
  7. SERETIDE [Concomitant]
     Dates: start: 20131022, end: 20131217
  8. SOTALOL [Concomitant]
     Dates: start: 20140206
  9. TRAXAM [Concomitant]
     Dates: start: 20140130
  10. VENTOLIN [Concomitant]
     Dates: start: 20131022, end: 20131119
  11. VENTOLIN [Concomitant]
     Dates: start: 20140129

REACTIONS (2)
  - Dyspnoea [Recovered/Resolved]
  - Throat tightness [Recovering/Resolving]
